FAERS Safety Report 4461267-7 (Version None)
Quarter: 2004Q3

REPORT INFORMATION
  Report Type: 
  Country: None (occurrence: None)
  Receive Date: 20040923
  Receipt Date: 20040913
  Transmission Date: 20050211
  Serious: Yes (Death, Hospitalization, Other)
  Sender: FDA-Public Use
  Company Number: US-JNJFOC-20040903437

PATIENT
  Age: 37 Year
  Sex: Female

DRUGS (2)
  1. EXTRA STRENGTH TYLENOL PM (ACETAMINOPHEN/DIPHENHYDRAMINE HCL) UNSPECIF [Suspect]
     Indication: SUICIDE ATTEMPT
  2. DIPHENHYDRAMINE (DIPHENHYDRAMINE) [Suspect]
     Indication: SUICIDE ATTEMPT

REACTIONS (7)
  - ALANINE AMINOTRANSFERASE INCREASED [None]
  - ASPARTATE AMINOTRANSFERASE INCREASED [None]
  - BRAIN DEATH [None]
  - COMA [None]
  - DEPRESSED LEVEL OF CONSCIOUSNESS [None]
  - HEART RATE INCREASED [None]
  - INTERNATIONAL NORMALISED RATIO INCREASED [None]
